FAERS Safety Report 8398573-X (Version None)
Quarter: 2012Q2

REPORT INFORMATION
  Report Type: 
  Country: None (occurrence: None)
  Receive Date: 20120531
  Receipt Date: 20120524
  Transmission Date: 20120825
  Serious: Yes (Other)
  Sender: FDA-Public Use
  Company Number: JP-ABBOTT-12P-087-0918283-00

PATIENT
  Sex: Male
  Weight: 76 kg

DRUGS (4)
  1. MUCODYNE [Concomitant]
     Indication: SINUSITIS
     Route: 048
     Dates: start: 20111220, end: 20120117
  2. HANGEKOBOKUTO [Concomitant]
     Indication: OROPHARYNGEAL DISCOMFORT
     Route: 048
     Dates: start: 20111220, end: 20120117
  3. CLARITHROMYCIN [Suspect]
     Indication: SINUSITIS
     Route: 048
     Dates: start: 20111220, end: 20120214
  4. ONON [Concomitant]
     Indication: RHINITIS ALLERGIC
     Route: 048
     Dates: start: 20111220, end: 20120117

REACTIONS (1)
  - HYPOGEUSIA [None]
